FAERS Safety Report 16352413 (Version 3)
Quarter: 2025Q2

REPORT INFORMATION
  Report Type: Spontaneous
  Country: DE (occurrence: DE)
  Receive Date: 20190524
  Receipt Date: 20250624
  Transmission Date: 20250716
  Serious: Yes (Hospitalization, Other)
  Sender: PFIZER
  Company Number: DE-GILEAD-2019-0398393

PATIENT
  Age: 60 Year
  Sex: Male
  Weight: 82 kg

DRUGS (16)
  1. LINEZOLID [Suspect]
     Active Substance: LINEZOLID
     Route: 065
  2. PIPERACILLIN SODIUM\TAZOBACTAM SODIUM [Suspect]
     Active Substance: PIPERACILLIN SODIUM\TAZOBACTAM SODIUM
     Indication: Klebsiella sepsis
     Route: 065
     Dates: start: 20190317, end: 20190325
  3. FLUDARABINE [Suspect]
     Active Substance: FLUDARABINE PHOSPHATE
     Indication: Bone marrow conditioning regimen
     Dosage: 62.1 MG, 1X/DAY
     Route: 042
     Dates: start: 20190308, end: 20190310
  4. CYCLOPHOSPHAMIDE [Suspect]
     Active Substance: CYCLOPHOSPHAMIDE
     Indication: Bone marrow conditioning regimen
     Dosage: 1035 MG, 1X/DAY
     Route: 042
     Dates: start: 20190308, end: 20190310
  5. YESCARTA [Suspect]
     Active Substance: AXICABTAGENE CILOLEUCEL
     Indication: Diffuse large B-cell lymphoma refractory
     Route: 042
     Dates: start: 20190314, end: 20190314
  6. LEVOTHYROXINE [Concomitant]
     Active Substance: LEVOTHYROXINE
  7. FLUCONAZOLE [Concomitant]
     Active Substance: FLUCONAZOLE
  8. SULFAMETHOXAZOLE\TRIMETHOPRIM [Concomitant]
     Active Substance: SULFAMETHOXAZOLE\TRIMETHOPRIM
  9. ACYCLOVIR [Concomitant]
     Active Substance: ACYCLOVIR
  10. POTASSIUM CHLORIDE [Concomitant]
     Active Substance: POTASSIUM CHLORIDE
  11. PREGABALIN [Concomitant]
     Active Substance: PREGABALIN
  12. CHOLECALCIFEROL [Concomitant]
     Active Substance: CHOLECALCIFEROL
  13. VALGANCICLOVIR [Concomitant]
     Active Substance: VALGANCICLOVIR
  14. CALCIVIT [Concomitant]
  15. SITAGLIPTIN [Concomitant]
     Active Substance: SITAGLIPTIN
  16. PANTOPRAZOLE [Concomitant]
     Active Substance: PANTOPRAZOLE

REACTIONS (6)
  - Cytokine release syndrome [Recovered/Resolved]
  - Klebsiella sepsis [Recovered/Resolved]
  - Hyperbilirubinaemia [Recovered/Resolved]
  - Neutropenia [Not Recovered/Not Resolved]
  - Alanine aminotransferase increased [Not Recovered/Not Resolved]
  - Aspartate aminotransferase increased [Not Recovered/Not Resolved]

NARRATIVE: CASE EVENT DATE: 20190317
